FAERS Safety Report 5856546-2 (Version None)
Quarter: 2008Q3

REPORT INFORMATION
  Report Type: 
  Country: None (occurrence: None)
  Receive Date: 20080822
  Receipt Date: 20080822
  Transmission Date: 20090109
  Serious: No
  Sender: FDA-Public Use
  Company Number: None

PATIENT
  Age: 71 Year
  Sex: Male
  Weight: 83.9154 kg

DRUGS (1)
  1. CIALIS [Suspect]
     Dosage: 5MG (1/4 TABLET 3X/MOUTH ORAL
     Route: 048
     Dates: start: 20071101, end: 20080801

REACTIONS (1)
  - EPISTAXIS [None]
